FAERS Safety Report 21972930 (Version 1)
Quarter: 2023Q1

REPORT INFORMATION
  Report Type: Spontaneous
  Country: US (occurrence: US)
  Receive Date: 20230209
  Receipt Date: 20230209
  Transmission Date: 20230418
  Serious: Yes (Life-Threatening, Hospitalization)
  Sender: FDA-Public Use
  Company Number: US-MYLANLABS-2023M1014485

PATIENT
  Age: 18 Year
  Sex: Male

DRUGS (5)
  1. HYDROCORTISONE [Suspect]
     Active Substance: HYDROCORTISONE
     Indication: Pericardial effusion
     Dosage: 100 MILLIGRAM/SQ. METER
     Route: 065
  2. EPINEPHRINE [Suspect]
     Active Substance: EPINEPHRINE
     Indication: Hypotension
     Dosage: UNK; INFUSION
     Route: 042
  3. HYDROCORTISONE [Suspect]
     Active Substance: HYDROCORTISONE
     Indication: Hypotension
     Dosage: UNK; INFUSION
     Route: 042
  4. NOREPINEPHRINE [Suspect]
     Active Substance: NOREPINEPHRINE
     Indication: Hypotension
     Dosage: UNK; INFUSION
     Route: 042
  5. MILRINONE [Suspect]
     Active Substance: MILRINONE
     Indication: Hypotension
     Dosage: UNK; INFUSION
     Route: 042

REACTIONS (1)
  - Drug ineffective [Unknown]
